FAERS Safety Report 7026348-2 (Version None)
Quarter: 2010Q4

REPORT INFORMATION
  Report Type: 
  Country: None (occurrence: None)
  Receive Date: 20101004
  Receipt Date: 20100928
  Transmission Date: 20110411
  Serious: Yes (Disabling, Other)
  Sender: FDA-Public Use
  Company Number: US-ELI_LILLY_AND_COMPANY-US201009002678

PATIENT
  Age: 53 Year
  Sex: Male

DRUGS (2)
  1. HUMULIN N [Suspect]
     Dosage: UNK, UNK
     Dates: start: 19900101
  2. HUMULIN R [Suspect]
     Dates: start: 19900101

REACTIONS (7)
  - DIABETES MELLITUS INADEQUATE CONTROL [None]
  - FALL [None]
  - INJURY [None]
  - MACULAR DEGENERATION [None]
  - PAIN [None]
  - RADIAL NERVE PALSY [None]
  - ROAD TRAFFIC ACCIDENT [None]
